FAERS Safety Report 11906396 (Version 1)
Quarter: 2016Q1

REPORT INFORMATION
  Report Type: Spontaneous
  Country: US (occurrence: US)
  Receive Date: 20160111
  Receipt Date: 20160111
  Transmission Date: 20160526
  Serious: No
  Sender: FDA-Public Use
  Company Number: US-PFIZER INC-2015445258

PATIENT
  Age: 47 Year
  Sex: Female
  Weight: 86.18 kg

DRUGS (1)
  1. NEOSPORIN G.U. [Suspect]
     Active Substance: NEOMYCIN SULFATE\POLYMYXIN B SULFATE
     Indication: DRY SKIN
     Dosage: UNK

REACTIONS (1)
  - Drug ineffective for unapproved indication [Unknown]
